FAERS Safety Report 23574414 (Version 1)
Quarter: 2024Q1

REPORT INFORMATION
  Report Type: Other
  Country: CN (occurrence: None)
  Receive Date: 20240228
  Receipt Date: 20240228
  Transmission Date: 20240409
  Serious: Yes (Other)
  Sender: FDA-Public Use
  Company Number: CN-ROCHE-3515468

PATIENT
  Age: 52 Year
  Sex: Female

DRUGS (7)
  1. BEVACIZUMAB [Suspect]
     Active Substance: BEVACIZUMAB
     Indication: Small cell lung cancer
     Route: 065
  2. ETOPOSIDE [Suspect]
     Active Substance: ETOPOSIDE
     Indication: Small cell lung cancer
     Route: 065
  3. CISPLATIN [Suspect]
     Active Substance: CISPLATIN
     Indication: Small cell lung cancer
     Route: 065
  4. ABRAXANE [Suspect]
     Active Substance: PACLITAXEL
     Indication: Small cell lung cancer
     Route: 065
  5. OSIMERTINIB [Concomitant]
     Active Substance: OSIMERTINIB
  6. AUMOLERTINIB [Concomitant]
     Active Substance: AUMOLERTINIB
  7. AFATINIB [Concomitant]
     Active Substance: AFATINIB

REACTIONS (5)
  - Metastases to bone [Unknown]
  - Disease progression [Unknown]
  - Pancreatic carcinoma metastatic [Unknown]
  - Metastases to central nervous system [Unknown]
  - Liver injury [Unknown]
